FAERS Safety Report 13984459 (Version 2)
Quarter: 2017Q3

REPORT INFORMATION
  Report Type: Spontaneous
  Country: US (occurrence: US)
  Receive Date: 20170918
  Receipt Date: 20170923
  Transmission Date: 20171128
  Serious: No
  Sender: FDA-Public Use
  Company Number: US-009507513-1709USA004897

PATIENT
  Age: 63 Year
  Sex: Female

DRUGS (3)
  1. ZOSTAVAX [Suspect]
     Active Substance: VARICELLA-ZOSTER VIRUS STRAIN OKA/MERCK LIVE ANTIGEN
     Indication: PROPHYLAXIS
     Route: 058
     Dates: start: 20170906, end: 20170906
  2. FLUARIX QUADRIVALENT [Concomitant]
     Dosage: UNK
     Route: 030
     Dates: start: 20170905
  3. STERILE DILUENT [Suspect]
     Active Substance: WATER
     Indication: MEDICATION DILUTION
     Dosage: UNK
     Dates: start: 20170906

REACTIONS (3)
  - Injection site erythema [Recovered/Resolved]
  - Injection site swelling [Recovered/Resolved]
  - Injection site pain [Recovered/Resolved]

NARRATIVE: CASE EVENT DATE: 20170906
